FAERS Safety Report 16383013 (Version 1)
Quarter: 2019Q2

REPORT INFORMATION
  Report Type: Spontaneous
  Country: TR (occurrence: TR)
  Receive Date: 20190603
  Receipt Date: 20190603
  Transmission Date: 20190711
  Serious: Yes (Other)
  Sender: FDA-Public Use
  Company Number: TR-DENTSPLY-2019SCDP000334

PATIENT

DRUGS (1)
  1. PRILOCAINE [Suspect]
     Active Substance: PRILOCAINE
     Indication: LOCAL ANAESTHESIA
     Dosage: UNK

REACTIONS (1)
  - Post procedural haemorrhage [Unknown]
